FAERS Safety Report 26068129 (Version 1)
Quarter: 2025Q4

REPORT INFORMATION
  Report Type: Spontaneous
  Country: CN (occurrence: CN)
  Receive Date: 20251120
  Receipt Date: 20251120
  Transmission Date: 20260118
  Serious: Yes (Other)
  Sender: AMGEN
  Company Number: CN-AMGEN-CHNSP2025228645

PATIENT

DRUGS (4)
  1. PROLIA [Suspect]
     Active Substance: DENOSUMAB
     Indication: Osteoporosis postmenopausal
     Dosage: 60 MILLIGRAM, Q6MO (MORE THAN OR EQUAL 2 DOSES)
     Route: 058
  2. CALCITRIOL [Concomitant]
     Active Substance: CALCITRIOL
     Dosage: 0.25 MICROGRAM, QD
     Route: 048
  3. CALCIUM CARBONATE [Concomitant]
     Active Substance: CALCIUM CARBONATE
     Dosage: 600 MILLIGRAM, QD
  4. VITAMIN D3 [Concomitant]
     Active Substance: CHOLECALCIFEROL
     Dosage: 400 INTERNATIONAL UNIT, QD

REACTIONS (2)
  - Compression fracture [Unknown]
  - Drug ineffective [Unknown]
